FAERS Safety Report 4949686-3 (Version None)
Quarter: 2006Q1

REPORT INFORMATION
  Report Type: 
  Country: None (occurrence: None)
  Receive Date: 20060316
  Receipt Date: 20060303
  Transmission Date: 20060701
  Serious: Yes (Death, Hospitalization)
  Sender: FDA-Public Use
  Company Number: AZAUS200600030

PATIENT
  Age: 79 Year
  Sex: Male
  Weight: 85.2762 kg

DRUGS (5)
  1. VIDAZA [Suspect]
     Indication: MYELODYSPLASTIC SYNDROME
     Dosage: 50 MG/M2 (100 MG, DAILY), SUBCUTANEOUS
     Route: 058
     Dates: start: 20060116, end: 20060123
  2. PREDNISONE TAB [Concomitant]
  3. FUROSEMIDE [Concomitant]
  4. VALSARTAN/HYDROCHLOROTHIAZIDE (CO-DIOVAN) [Concomitant]
  5. LANSOPRAZOLE [Concomitant]

REACTIONS (7)
  - ASTHENIA [None]
  - BLOOD PRESSURE DECREASED [None]
  - DYSPNOEA [None]
  - HAEMOGLOBIN DECREASED [None]
  - PNEUMONIA [None]
  - TREMOR [None]
  - WHITE BLOOD CELL COUNT DECREASED [None]
